FAERS Safety Report 15736042 (Version 1)
Quarter: 2018Q4

REPORT INFORMATION
  Report Type: Spontaneous
  Country: US (occurrence: US)
  Receive Date: 20181218
  Receipt Date: 20181218
  Transmission Date: 20190205
  Serious: Yes (Hospitalization, Disabling, Other)
  Sender: FDA-Public Use
  Company Number: US-TEVA-2018-US-988388

PATIENT

DRUGS (1)
  1. CLONAZEPAM ACTAVIS [Suspect]
     Active Substance: CLONAZEPAM
     Route: 065

REACTIONS (13)
  - Disability [Unknown]
  - Suicide attempt [Unknown]
  - Photophobia [Unknown]
  - Product substitution issue [Unknown]
  - Vision blurred [Unknown]
  - Migraine [Unknown]
  - Diarrhoea [Unknown]
  - Withdrawal syndrome [Unknown]
  - Feeding disorder [Unknown]
  - Nausea [Unknown]
  - Abdominal pain [Unknown]
  - Impaired work ability [Unknown]
  - Insomnia [Unknown]
